FAERS Safety Report 4367046-3 (Version None)
Quarter: 2004Q2

REPORT INFORMATION
  Report Type: 
  Country: None (occurrence: None)
  Receive Date: 20040528
  Receipt Date: 20040519
  Transmission Date: 20050107
  Serious: Yes (Death)
  Sender: FDA-Public Use
  Company Number: FR-JNJFOC-20040406512

PATIENT
  Sex: Male

DRUGS (5)
  1. RISPERDAL [Suspect]
     Route: 049
  2. TERCIAN [Concomitant]
     Indication: AGITATION
     Route: 065
  3. RIVOTRIL [Concomitant]
     Indication: ANXIETY
     Route: 065
  4. LEPTICUR [Concomitant]
  5. TRIMEPRAZINE TAB [Concomitant]
     Indication: INSOMNIA
     Route: 065

REACTIONS (4)
  - ANURIA [None]
  - CARDIAC ARREST [None]
  - RESPIRATORY ARREST [None]
  - SOMNOLENCE [None]
